FAERS Safety Report 4972515-9 (Version None)
Quarter: 2006Q1

REPORT INFORMATION
  Report Type: 
  Country: None (occurrence: None)
  Receive Date: 20060216
  Receipt Date: 20051116
  Transmission Date: 20060701
  Serious: No
  Sender: FDA-Public Use
  Company Number: TPA2005A01158

PATIENT
  Age: 26 Year
  Sex: Male
  Weight: 95.2554 kg

DRUGS (2)
  1. ROZEREM [Suspect]
     Indication: SLEEP DISORDER
     Dosage: 8 MG, QHS, PER ORAL
     Route: 048
     Dates: start: 20050930, end: 20051001
  2. FLUVOXAMINE (FLUVOXAMINE) (50 MILLIGRAM) [Suspect]
     Indication: OBSESSIVE-COMPULSIVE DISORDER
     Dosage: 50 MG, 1 IN 1 D, PER ORAL
     Route: 048
     Dates: start: 20050930

REACTIONS (5)
  - ANXIETY [None]
  - DEPRESSION [None]
  - GASTROENTERITIS VIRAL [None]
  - HEADACHE [None]
  - RESTLESSNESS [None]
